FAERS Safety Report 5148890-1 (Version None)
Quarter: 2006Q4

REPORT INFORMATION
  Report Type: 
  Country: None (occurrence: None)
  Receive Date: 20061113
  Receipt Date: 20061106
  Transmission Date: 20070319
  Serious: Yes (Other)
  Sender: FDA-Public Use
  Company Number: US-JNJFOC-20061101270

PATIENT
  Age: 4 Decade
  Sex: Male

DRUGS (2)
  1. REMICADE [Suspect]
     Indication: CROHN'S DISEASE
     Dosage: INITIATED SEVERAL YEARS AGO
     Route: 042
  2. 6-MP [Concomitant]

REACTIONS (1)
  - MYCOBACTERIAL INFECTION [None]
